FAERS Safety Report 9861788 (Version 3)
Quarter: 2015Q1

REPORT INFORMATION
  Report Type: Spontaneous
  Country: US (occurrence: US)
  Receive Date: 20140203
  Receipt Date: 20150306
  Transmission Date: 20150721
  Serious: Yes (Death, Life-Threatening, Hospitalization, Other)
  Sender: FDA-Public Use
  Company Number: US-009507513-1401USA014676

PATIENT
  Sex: Male
  Weight: 81.63 kg

DRUGS (3)
  1. JANUVIA [Suspect]
     Active Substance: SITAGLIPTIN PHOSPHATE
     Dosage: 100 MG, QD
     Route: 048
     Dates: start: 20110114, end: 20110313
  2. LANTUS [Concomitant]
     Active Substance: INSULIN GLARGINE
     Indication: TYPE 2 DIABETES MELLITUS
     Dosage: 20-30 IU, DAILY
     Dates: start: 2010
  3. JANUVIA [Suspect]
     Active Substance: SITAGLIPTIN PHOSPHATE
     Indication: TYPE 2 DIABETES MELLITUS
     Dosage: 100 MG, QD
     Route: 048
     Dates: start: 20100702, end: 20110110

REACTIONS (44)
  - Rotator cuff repair [Unknown]
  - Haematuria [Unknown]
  - Hypertension [Unknown]
  - Nocturia [Unknown]
  - Vertebral foraminal stenosis [Unknown]
  - Flank pain [Unknown]
  - Anxiety [Unknown]
  - Diverticulum intestinal [Unknown]
  - Dehydration [Unknown]
  - Marasmus [Unknown]
  - Metastases to liver [Unknown]
  - Renal disorder [Unknown]
  - Pulmonary mass [Unknown]
  - Renal vessel disorder [Unknown]
  - Pulmonary mass [Unknown]
  - Spinal osteoarthritis [Unknown]
  - Metastases to bone [Unknown]
  - Interstitial lung disease [Unknown]
  - Atelectasis [Unknown]
  - Vascular calcification [Unknown]
  - Hypercholesterolaemia [Unknown]
  - Confusional state [Unknown]
  - Depression [Unknown]
  - Abdominal distension [Unknown]
  - Gastric disorder [Unknown]
  - Thyroid neoplasm [Unknown]
  - Aortic arteriosclerosis [Unknown]
  - Splenic vein occlusion [Unknown]
  - Coronary angioplasty [Unknown]
  - Intervertebral disc degeneration [Unknown]
  - Lumbar spinal stenosis [Unknown]
  - Ascites [Unknown]
  - Pancreatic carcinoma metastatic [Fatal]
  - Osteoarthritis [Unknown]
  - Radiotherapy [Unknown]
  - Bladder dilatation [Unknown]
  - Pelvic fluid collection [Unknown]
  - Rash [Unknown]
  - Sinus bradycardia [Unknown]
  - Gastrooesophageal reflux disease [Unknown]
  - Coronary artery disease [Unknown]
  - Dysgeusia [Unknown]
  - Nerve compression [Unknown]
  - Asthenia [Unknown]

NARRATIVE: CASE EVENT DATE: 20110222
